FAERS Safety Report 5040982-0 (Version None)
Quarter: 2006Q2

REPORT INFORMATION
  Report Type: 
  Country: None (occurrence: None)
  Receive Date: 20060601
  Receipt Date: 20060307
  Transmission Date: 20061013
  Serious: No
  Sender: FDA-Public Use
  Company Number: 2006PV009814

PATIENT
  Age: 55 Year
  Sex: Female

DRUGS (3)
  1. BYETTA [Suspect]
     Indication: DIABETES MELLITUS NON-INSULIN-DEPENDENT
     Dosage: 5 MCG;QD;SC
     Route: 058
     Dates: start: 20060110, end: 20060220
  2. METFORMIN [Concomitant]
  3. GLUCOTROL [Concomitant]

REACTIONS (3)
  - ASTHENIA [None]
  - INFLUENZA LIKE ILLNESS [None]
  - SINUSITIS [None]
